FAERS Safety Report 16470860 (Version 1)
Quarter: 2019Q2

REPORT INFORMATION
  Report Type: Spontaneous
  Country: CH (occurrence: CH)
  Receive Date: 20190624
  Receipt Date: 20190624
  Transmission Date: 20190711
  Serious: Yes (Life-Threatening, Other)
  Sender: FDA-Public Use
  Company Number: CH-PURDUE-GBR-2019-0067341

PATIENT
  Age: 89 Year
  Sex: Male

DRUGS (1)
  1. SEVRE-LONG [Suspect]
     Active Substance: MORPHINE SULFATE
     Indication: PRODUCT USED FOR UNKNOWN INDICATION
     Dosage: 200 MG, DAILY (IN TOTAL)
     Route: 048
     Dates: start: 20190425, end: 20190425

REACTIONS (6)
  - Hypoxia [Recovered/Resolved]
  - Respiratory acidosis [Recovered/Resolved]
  - Depressed level of consciousness [Recovered/Resolved]
  - Wrong patient received product [Recovered/Resolved]
  - Bradypnoea [Recovered/Resolved]
  - Miosis [Recovered/Resolved]

NARRATIVE: CASE EVENT DATE: 20190425
